FAERS Safety Report 12256966 (Version 2)
Quarter: 2016Q2

REPORT INFORMATION
  Report Type: Spontaneous
  Country: SE (occurrence: SE)
  Receive Date: 20160412
  Receipt Date: 20160418
  Transmission Date: 20160815
  Serious: Yes (Hospitalization)
  Sender: FDA-Public Use
  Company Number: SE-SA-2016SA068197

PATIENT
  Age: 45 Year
  Sex: Male

DRUGS (3)
  1. NOBLIGAN [Suspect]
     Active Substance: TRAMADOL HYDROCHLORIDE
     Dosage: DOSE: 4-5 TABLETS OF UNKNOWN STRENGTH
     Route: 048
     Dates: start: 20130206, end: 20130206
  2. PANODIL [Suspect]
     Active Substance: ACETAMINOPHEN
     Route: 048
     Dates: start: 20130206, end: 20130206
  3. ZOLPIDEM [Suspect]
     Active Substance: ZOLPIDEM\ZOLPIDEM TARTRATE
     Route: 048
     Dates: start: 20130206, end: 20130206

REACTIONS (3)
  - Suicide attempt [Recovered/Resolved]
  - Depressed level of consciousness [Recovered/Resolved]
  - Toxicity to various agents [Recovered/Resolved]

NARRATIVE: CASE EVENT DATE: 20130206
